FAERS Safety Report 4889759-7 (Version None)
Quarter: 2006Q1

REPORT INFORMATION
  Report Type: 
  Country: None (occurrence: None)
  Receive Date: 20060123
  Receipt Date: 20060123
  Transmission Date: 20060701
  Serious: Yes (Other)
  Sender: FDA-Public Use
  Company Number: None

PATIENT
  Sex: Female

DRUGS (1)
  1. INSULIN U-500 [Suspect]
     Indication: INSULIN RESISTANT DIABETES
     Dosage: 60 UNITS/300 UNITS QDAY SQ
     Route: 058
     Dates: start: 20051214, end: 20051216

REACTIONS (4)
  - BLOOD GLUCOSE INCREASED [None]
  - DRUG PRESCRIBING ERROR [None]
  - INCORRECT DOSE ADMINISTERED [None]
  - MEDICATION ERROR [None]
